FAERS Safety Report 6971359-6 (Version None)
Quarter: 2010Q3

REPORT INFORMATION
  Report Type: 
  Country: None (occurrence: None)
  Receive Date: 20100908
  Receipt Date: 20100831
  Transmission Date: 20110219
  Serious: Yes (Other)
  Sender: FDA-Public Use
  Company Number: PHHY2010US55172

PATIENT
  Sex: Female

DRUGS (8)
  1. FEMARA [Suspect]
     Indication: BREAST CANCER
     Dosage: UNK
  2. FOSAMAX [Concomitant]
     Dosage: UNK
  3. VENLAFAXINE [Concomitant]
     Dosage: 75 MG, UNK
  4. TRAZODONE HCL [Concomitant]
     Dosage: 115 MG, UNK
  5. METOPROLOL TARTRATE [Concomitant]
     Dosage: 10 MG, UNK
  6. CLONAZEPAM [Concomitant]
     Dosage: UNK
  7. NORCO [Concomitant]
     Dosage: 10/325 ONE BID
  8. BUPROPION HCL [Concomitant]
     Dosage: 300 MG ONE QD

REACTIONS (5)
  - FALL [None]
  - MUSCULAR WEAKNESS [None]
  - MUSCULOSKELETAL CHEST PAIN [None]
  - RIB FRACTURE [None]
  - SYNCOPE [None]
